FAERS Safety Report 11375044 (Version 3)
Quarter: 2016Q1

REPORT INFORMATION
  Report Type: Spontaneous
  Country: JP (occurrence: JP)
  Receive Date: 20150813
  Receipt Date: 20160118
  Transmission Date: 20160525
  Serious: Yes (Death, Hospitalization, Other)
  Sender: FDA-Public Use
  Company Number: JP-ROCHE-1620649

PATIENT
  Age: 64 Year
  Sex: Female
  Weight: 50 kg

DRUGS (15)
  1. PANTETHINE [Concomitant]
     Active Substance: PANTETHINE
     Route: 048
  2. RESTAMIN [Concomitant]
     Active Substance: DIPHENHYDRAMINE
     Route: 048
  3. MUCOSTA [Concomitant]
     Active Substance: REBAMIPIDE
     Dosage: AT THE PAIN
     Route: 048
     Dates: start: 20110705
  4. LYRICA [Concomitant]
     Active Substance: PREGABALIN
     Indication: NEUROPATHY PERIPHERAL
     Route: 048
     Dates: start: 201102
  5. MS CONTIN [Concomitant]
     Active Substance: MORPHINE SULFATE
     Route: 048
     Dates: start: 20140806, end: 20141016
  6. OPSO [Concomitant]
     Active Substance: MORPHINE HYDROCHLORIDE
     Dosage: SINGLE USE
     Route: 062
  7. MAGMITT [Concomitant]
     Active Substance: MAGNESIUM OXIDE
     Route: 048
     Dates: start: 20140806
  8. DEXALTIN [Concomitant]
     Active Substance: DEXAMETHASONE
     Dosage: DOSAGE IS UNCERTAIN.
     Route: 003
  9. BONALON [Concomitant]
     Active Substance: ALENDRONATE SODIUM
     Dosage: DOSAGE IS UNCERTAIN.
     Route: 048
  10. PACLITAXEL. [Suspect]
     Active Substance: PACLITAXEL
     Indication: OVARIAN CANCER
     Dosage: DOSAGE UNCERTAIN.?COMPLETED TREATMENT CYCLE NUMBER: 1
     Route: 041
     Dates: start: 20140910, end: 20140925
  11. MS CONTIN [Concomitant]
     Active Substance: MORPHINE SULFATE
     Route: 048
  12. SHAKUYAKUKANZOTO [Suspect]
     Active Substance: HERBALS
     Indication: PROPHYLAXIS
     Route: 048
     Dates: start: 20140910, end: 20141016
  13. EDIROL [Concomitant]
     Active Substance: ELDECALCITOL
     Dosage: 1CP/DAY
     Route: 048
  14. AVASTIN [Suspect]
     Active Substance: BEVACIZUMAB
     Indication: OVARIAN CANCER
     Route: 041
     Dates: start: 20140910, end: 20140910
  15. LOXOMARIN [Concomitant]
     Active Substance: LOXOPROFEN
     Dosage: AT THE PAIN
     Route: 048
     Dates: start: 20110705

REACTIONS (3)
  - Ovarian cancer [Fatal]
  - Interstitial lung disease [Recovered/Resolved]
  - Pneumothorax [Recovered/Resolved]

NARRATIVE: CASE EVENT DATE: 20141004
